FAERS Safety Report 11254616 (Version 1)
Quarter: 2015Q3

REPORT INFORMATION
  Report Type: Spontaneous
  Country: US (occurrence: None)
  Receive Date: 20150708
  Receipt Date: 20150708
  Transmission Date: 20151125
  Serious: Yes (Disabling)
  Sender: FDA-Public Use
  Company Number: None

PATIENT
  Age: 54 Week
  Sex: Female
  Weight: 57.61 kg

DRUGS (6)
  1. BENADRYL [Concomitant]
     Active Substance: DIPHENHYDRAMINE HYDROCHLORIDE
  2. TOPAMAX [Suspect]
     Active Substance: TOPIRAMATE
     Indication: MIGRAINE
     Dosage: 1 PILL
     Route: 048
  3. LEXAPRO [Concomitant]
     Active Substance: ESCITALOPRAM OXALATE
  4. TOPAMAX [Suspect]
     Active Substance: TOPIRAMATE
     Indication: PROPHYLAXIS
     Dosage: 1 PILL
     Route: 048
  5. MELOXICAM. [Concomitant]
     Active Substance: MELOXICAM
  6. CLONAZEPAM. [Concomitant]
     Active Substance: CLONAZEPAM

REACTIONS (12)
  - Gait disturbance [None]
  - Abasia [None]
  - Feeling abnormal [None]
  - Dysphemia [None]
  - Amnesia [None]
  - Thinking abnormal [None]
  - Mental impairment [None]
  - Balance disorder [None]
  - Bedridden [None]
  - Quality of life decreased [None]
  - Fall [None]
  - Dyslexia [None]

NARRATIVE: CASE EVENT DATE: 20150626
